FAERS Safety Report 13839120 (Version 1)
Quarter: 2017Q3

REPORT INFORMATION
  Report Type: Spontaneous
  Country: US (occurrence: US)
  Receive Date: 20170806
  Receipt Date: 20170806
  Transmission Date: 20171127
  Serious: Yes (Hospitalization, Disabling, Other)
  Sender: FDA-Public Use
  Company Number: None

PATIENT
  Age: 53 Year
  Sex: Male
  Weight: 83.25 kg

DRUGS (10)
  1. GEMIFLOXACIN [Suspect]
     Active Substance: GEMIFLOXACIN
     Indication: GASTROINTESTINAL INFECTION
     Dates: start: 20070815, end: 20170301
  2. LISINOPRIL. [Concomitant]
     Active Substance: LISINOPRIL
  3. CARBADOVA\LEVADOPA [Concomitant]
  4. CYMBALTA [Concomitant]
     Active Substance: DULOXETINE HYDROCHLORIDE
  5. FENTANYL. [Concomitant]
     Active Substance: FENTANYL
  6. MEDS FOR ISSUES WITH BALANCE, WALKING, SWALLOWING, ETC. [Concomitant]
  7. GEMIFLOXACIN [Suspect]
     Active Substance: GEMIFLOXACIN
     Indication: URINARY TRACT INFECTION
     Dates: start: 20070815, end: 20170301
  8. GEMIFLOXACIN [Suspect]
     Active Substance: GEMIFLOXACIN
     Indication: SINUSITIS
     Dates: start: 20070815, end: 20170301
  9. GEMIFLOXACIN [Suspect]
     Active Substance: GEMIFLOXACIN
     Indication: RESPIRATORY TRACT INFECTION
     Dates: start: 20070815, end: 20170301
  10. MEDS FOR NEUROLOGICAL PAIN [Concomitant]

REACTIONS (16)
  - Fall [None]
  - Depression [None]
  - Malaise [None]
  - Muscular weakness [None]
  - Parkinson^s disease [None]
  - Toxicity to various agents [None]
  - Amnesia [None]
  - Appendicitis perforated [None]
  - Lower limb fracture [None]
  - Fatigue [None]
  - Spinal fracture [None]
  - Head injury [None]
  - Asthenia [None]
  - Gallbladder disorder [None]
  - Open fracture [None]
  - Quality of life decreased [None]

NARRATIVE: CASE EVENT DATE: 20070815
